FAERS Safety Report 9630246 (Version 1)
Quarter: 2013Q4

REPORT INFORMATION
  Report Type: Report from Study
  Country: CA (occurrence: CA)
  Receive Date: 20131017
  Receipt Date: 20131017
  Transmission Date: 20140711
  Serious: Yes (Other)
  Sender: FDA-Public Use
  Company Number: PHHY2013CA116953

PATIENT
  Age: 78 Year
  Sex: Female
  Weight: 58 kg

DRUGS (3)
  1. ACLASTA/ZOLEDRONATE [Suspect]
     Dosage: UNK UKN, UNK
     Route: 042
     Dates: start: 20090603
  2. VITAMIN D NOS [Concomitant]
     Dosage: 800 IU, UNK
     Dates: start: 20090329
  3. CALCIUM [Concomitant]
     Dosage: 1000 MG, UNK
     Dates: start: 20090329

REACTIONS (2)
  - Wrist fracture [Unknown]
  - Fall [Unknown]
